FAERS Safety Report 16966882 (Version 1)
Quarter: 2019Q4

REPORT INFORMATION
  Report Type: Spontaneous
  Country: US (occurrence: US)
  Receive Date: 20191028
  Receipt Date: 20191028
  Transmission Date: 20200122
  Serious: No
  Sender: FDA-Public Use
  Company Number: US-SA-2019SA296997

PATIENT
  Age: 16 Year
  Sex: Female

DRUGS (2)
  1. KETOCONAZOLE. [Concomitant]
     Active Substance: KETOCONAZOLE
  2. DUPIXENT [Suspect]
     Active Substance: DUPILUMAB
     Indication: DERMATITIS ALLERGIC
     Dosage: 400 MG, QD
     Route: 058
     Dates: start: 20191014

REACTIONS (2)
  - Product use issue [Unknown]
  - Rash pruritic [Unknown]

NARRATIVE: CASE EVENT DATE: 20191020
